FAERS Safety Report 7731145-6 (Version None)
Quarter: 2011Q3

REPORT INFORMATION
  Report Type: 
  Country: None (occurrence: None)
  Receive Date: 20110906
  Receipt Date: 20110906
  Transmission Date: 20111222
  Serious: Yes (Life-Threatening, Other)
  Sender: FDA-Public Use
  Company Number: None

PATIENT
  Sex: Male
  Weight: 104.32 kg

DRUGS (1)
  1. ZOLPIDEM [Suspect]
     Indication: INSOMNIA
     Dosage: 10MG
     Route: 048
     Dates: start: 20110901, end: 20110902

REACTIONS (4)
  - SOMNAMBULISM [None]
  - APPETITE DISORDER [None]
  - ABNORMAL BEHAVIOUR [None]
  - HALLUCINATION [None]
